FAERS Safety Report 12665893 (Version 1)
Quarter: 2016Q3

REPORT INFORMATION
  Report Type: Spontaneous
  Country: US (occurrence: US)
  Receive Date: 20160818
  Receipt Date: 20160818
  Transmission Date: 20161109
  Serious: No
  Sender: FDA-Public Use
  Company Number: US-ALLERGAN-1659016US

PATIENT
  Age: 65 Year
  Sex: Female

DRUGS (1)
  1. KYBELLA [Suspect]
     Active Substance: DEOXYCHOLIC ACID
     Indication: FAT TISSUE INCREASED
     Dosage: UNK, SINGLE
     Route: 058
     Dates: start: 20160525, end: 20160525

REACTIONS (2)
  - Injection site swelling [Recovered/Resolved]
  - Administration site induration [Not Recovered/Not Resolved]

NARRATIVE: CASE EVENT DATE: 2016
